FAERS Safety Report 6383349-5 (Version None)
Quarter: 2009Q4

REPORT INFORMATION
  Report Type: 
  Country: None (occurrence: None)
  Receive Date: 20091001
  Receipt Date: 20090921
  Transmission Date: 20100525
  Serious: Yes (Hospitalization, Other)
  Sender: FDA-Public Use
  Company Number: PHHY2009AU26955

PATIENT
  Sex: Female

DRUGS (2)
  1. CLOZARIL [Suspect]
     Indication: SCHIZOPHRENIA
     Dosage: UNK
  2. CLOZARIL [Suspect]
     Dosage: 400 MG DAILY

REACTIONS (3)
  - AORTIC STENOSIS [None]
  - SCHIZOPHRENIA [None]
  - TREATMENT NONCOMPLIANCE [None]
